FAERS Safety Report 6042069-7 (Version None)
Quarter: 2009Q1

REPORT INFORMATION
  Report Type: 
  Country: None (occurrence: None)
  Receive Date: 20090116
  Receipt Date: 20080819
  Transmission Date: 20090719
  Serious: No
  Sender: FDA-Public Use
  Company Number: US-BAYER-200811892BCC

PATIENT
  Age: 65 Year
  Sex: Female
  Weight: 82 kg

DRUGS (7)
  1. FINACEA [Suspect]
     Indication: ROSACEA
     Route: 061
  2. FINACEA [Suspect]
     Route: 061
  3. ASPIRIN [Concomitant]
  4. ATACAND [Concomitant]
  5. FUROSEMIDE [Concomitant]
  6. DITROPAN [Concomitant]
  7. NORITATE [Concomitant]
     Indication: ROSACEA

REACTIONS (1)
  - ROSACEA [None]
